FAERS Safety Report 14033104 (Version 6)
Quarter: 2017Q4

REPORT INFORMATION
  Report Type: Spontaneous
  Country: US (occurrence: US)
  Receive Date: 20171003
  Receipt Date: 20171215
  Transmission Date: 20180321
  Serious: No
  Sender: FDA-Public Use
  Company Number: US-PFIZER INC-2017425262

PATIENT
  Age: 13 Year
  Sex: Male
  Weight: 49 kg

DRUGS (3)
  1. ADVIL [Suspect]
     Active Substance: IBUPROFEN
     Indication: PYREXIA
  2. ADVIL [Suspect]
     Active Substance: IBUPROFEN
     Indication: PAIN
     Dosage: 200 MG, EVERY 6-8 HOURS AS NEEDED
     Route: 048
     Dates: start: 20170929, end: 20170929
  3. FLUOXETINE [Concomitant]
     Active Substance: FLUOXETINE HYDROCHLORIDE
     Indication: DEPRESSION
     Dosage: UNK, DAILY

REACTIONS (5)
  - Product quality issue [Recovered/Resolved]
  - Oral discomfort [Recovered/Resolved]
  - Tongue discomfort [Unknown]
  - Dyspepsia [Not Recovered/Not Resolved]
  - Hypersensitivity [Unknown]

NARRATIVE: CASE EVENT DATE: 20170929
